FAERS Safety Report 5169210-2 (Version None)
Quarter: 2006Q4

REPORT INFORMATION
  Report Type: 
  Country: None (occurrence: None)
  Receive Date: 20061201
  Receipt Date: 20061121
  Transmission Date: 20070319
  Serious: Yes (Other)
  Sender: FDA-Public Use
  Company Number: 2006144730

PATIENT
  Age: 36 Year
  Sex: Male

DRUGS (3)
  1. ZOLOFT [Suspect]
     Indication: DEPRESSION
     Dosage: (30 MG, FREQUENCY: DAILY), ORAL
     Route: 048
     Dates: start: 20060801
  2. ZOLOFT [Suspect]
     Indication: PANIC ATTACK
     Dosage: (30 MG, FREQUENCY: DAILY), ORAL
     Route: 048
     Dates: start: 20060801
  3. DIAZEPAM [Concomitant]

REACTIONS (2)
  - DEAFNESS UNILATERAL [None]
  - TINNITUS [None]
